FAERS Safety Report 25957109 (Version 3)
Quarter: 2025Q4

REPORT INFORMATION
  Report Type: Spontaneous
  Country: US (occurrence: US)
  Receive Date: 20251024
  Receipt Date: 20251105
  Transmission Date: 20260117
  Serious: Yes (Other)
  Sender: Haleon PLC
  Company Number: US-HALEON-2269568

PATIENT

DRUGS (1)
  1. ADVIL [Suspect]
     Active Substance: IBUPROFEN
     Indication: Pain

REACTIONS (5)
  - Choking [Unknown]
  - Drug ineffective [Unknown]
  - Product taste abnormal [Unknown]
  - Retching [Unknown]
  - Product use issue [Unknown]
